FAERS Safety Report 6128092-2 (Version None)
Quarter: 2009Q1

REPORT INFORMATION
  Report Type: 
  Country: None (occurrence: None)
  Receive Date: 20090320
  Receipt Date: 20090320
  Transmission Date: 20090719
  Serious: No
  Sender: FDA-Public Use
  Company Number: None

PATIENT
  Sex: Female

DRUGS (2)
  1. FOSAMAX [Suspect]
     Indication: OSTEOPOROSIS
     Dosage: 70 MG WEEKLY ORAL
     Route: 048
     Dates: start: 19980101, end: 20081101
  2. MULTI-VITAMINS [Concomitant]

REACTIONS (3)
  - BONE DISORDER [None]
  - ERYTHEMA [None]
  - OEDEMA [None]
